FAERS Safety Report 4006880 (Version 6)
Quarter: 2013Q3

REPORT INFORMATION
  Report Type: Spontaneous
  Country: JP (occurrence: JP)
  Receive Date: 20031002
  Receipt Date: 20130702
  Transmission Date: 20140515
  Serious: Yes (Death, Life-Threatening, Hospitalization)
  Sender: FDA-Public Use
  Company Number: PHBS2003JP10097

PATIENT
  Age: 82 Year
  Sex: Male

DRUGS (7)
  1. TERBINAFINE [Suspect]
     Indication: ONYCHOMYCOSIS
     Dosage: 125 MG,
     Route: 048
     Dates: start: 20030812, end: 20030906
  2. PURSENNID [Concomitant]
     Indication: CONSTIPATION
     Dosage: 12 MG
     Route: 048
     Dates: start: 20001023, end: 20030909
  3. GASTER D [Concomitant]
     Indication: GASTRIC ULCER
     Dosage: 20 MG
     Route: 048
     Dates: start: 20030318, end: 20030909
  4. TAKEPRON [Concomitant]
     Indication: DUODENAL ULCER
     Dosage: 30 MG
     Route: 048
     Dates: start: 20030906, end: 20030908
  5. SOSEGON [Concomitant]
     Dosage: 30 MG,
     Route: 030
     Dates: start: 20030911, end: 20030912
  6. VASOLAN [Concomitant]
     Indication: ARRHYTHMIA
     Dosage: 40 MG
     Route: 048
     Dates: start: 20030825
  7. HARNAL [Concomitant]
     Dosage: 0.2 MG PER DAY
     Route: 048
     Dates: start: 20030218

REACTIONS (20)
  - Coma hepatic [Fatal]
  - Respiration abnormal [Fatal]
  - Depressed level of consciousness [Fatal]
  - Metabolic acidosis [Fatal]
  - Arrhythmia [Fatal]
  - Hepatitis fulminant [Fatal]
  - Jaundice [Fatal]
  - Hepatomegaly [Fatal]
  - Hyperbilirubinaemia [Fatal]
  - Abdominal tenderness [Fatal]
  - Liver function test abnormal [Fatal]
  - Blood lactate dehydrogenase increased [Fatal]
  - Hepatic failure [Fatal]
  - Duodenal ulcer [Unknown]
  - Gastritis erosive [Unknown]
  - Dyspepsia [Unknown]
  - Abdominal pain [Unknown]
  - Abdominal discomfort [Unknown]
  - Blood creatine phosphokinase increased [Unknown]
  - Malaise [Unknown]
